FAERS Safety Report 4946276-3 (Version None)
Quarter: 2006Q1

REPORT INFORMATION
  Report Type: 
  Country: None (occurrence: None)
  Receive Date: 20060316
  Receipt Date: 20060316
  Transmission Date: 20060701
  Serious: No
  Sender: FDA-Public Use
  Company Number: None

PATIENT
  Sex: Female
  Weight: 53.978 kg

DRUGS (1)
  1. MULTIHANCE [Suspect]
     Indication: NUCLEAR MAGNETIC RESONANCE IMAGING
     Dosage: 30 ML X1 IV
     Route: 042
     Dates: start: 20060214, end: 20060214

REACTIONS (4)
  - ERYTHEMA OF EYELID [None]
  - EYE DISORDER [None]
  - EYELID OEDEMA [None]
  - FEELING ABNORMAL [None]
